FAERS Safety Report 4568085-X (Version None)
Quarter: 2005Q1

REPORT INFORMATION
  Report Type: 
  Country: None (occurrence: None)
  Receive Date: 20050128
  Receipt Date: 20050121
  Transmission Date: 20050727
  Serious: Yes (Other)
  Sender: FDA-Public Use
  Company Number: 2005UW01112

PATIENT
  Age: 42 Year
  Sex: Female
  Weight: 93.893 kg

DRUGS (2)
  1. SEROQUEL [Suspect]
     Indication: ANXIETY
     Dosage: 125 MG DAILY PO
     Route: 048
  2. SEROQUEL [Suspect]
     Indication: SLEEP DISORDER
     Dosage: 125 MG DAILY PO
     Route: 048

REACTIONS (2)
  - HEPATIC ENZYME INCREASED [None]
  - PLATELET COUNT DECREASED [None]
